FAERS Safety Report 21369305 (Version 1)
Quarter: 2022Q3

REPORT INFORMATION
  Report Type: Spontaneous
  Country: US (occurrence: US)
  Receive Date: 20220923
  Receipt Date: 20220923
  Transmission Date: 20221027
  Serious: Yes (Hospitalization, Other)
  Sender: FDA-Public Use
  Company Number: US-EXELIXIS-CABO-22055325

PATIENT
  Age: 43 Year
  Sex: Female
  Weight: 60.7 kg

DRUGS (3)
  1. CABOMETYX [Suspect]
     Active Substance: CABOZANTINIB S-MALATE
     Indication: Chromophobe renal cell carcinoma
     Dosage: UNK
     Dates: start: 20220517, end: 202208
  2. NIVOLUMAB [Suspect]
     Active Substance: NIVOLUMAB
     Indication: Chromophobe renal cell carcinoma
     Dosage: 03 MG/KG, Q3WEEKS
     Route: 042
     Dates: start: 20220517, end: 20220831
  3. IPILIMUMAB [Suspect]
     Active Substance: IPILIMUMAB
     Indication: Chromophobe renal cell carcinoma
     Dosage: 01 MG/KG, Q3WEEKS
     Route: 042
     Dates: start: 20220517, end: 20220831

REACTIONS (16)
  - Pain [Unknown]
  - Dehydration [Recovered/Resolved]
  - Nausea [Not Recovered/Not Resolved]
  - Vomiting [Not Recovered/Not Resolved]
  - Pyrexia [Not Recovered/Not Resolved]
  - Tachycardia [Unknown]
  - Lung opacity [Unknown]
  - Anaemia [Unknown]
  - Hyponatraemia [Unknown]
  - Aspartate aminotransferase increased [Unknown]
  - Blood alkaline phosphatase increased [Unknown]
  - White blood cells urine positive [Unknown]
  - Pulmonary mass [Unknown]
  - Retroperitoneal lymphadenopathy [Unknown]
  - Metastases to bone [Unknown]
  - Metastases to central nervous system [Unknown]

NARRATIVE: CASE EVENT DATE: 20220801
